FAERS Safety Report 9744231 (Version 1)
Quarter: 2013Q4

REPORT INFORMATION
  Report Type: Spontaneous
  Country: US (occurrence: US)
  Receive Date: 20131210
  Receipt Date: 20131210
  Transmission Date: 20140711
  Serious: No
  Sender: FDA-Public Use
  Company Number: US-BIOGENIDEC-2013BI101178

PATIENT
  Sex: Female

DRUGS (11)
  1. TECFIDERA [Suspect]
     Indication: PRODUCT USED FOR UNKNOWN INDICATION
     Route: 048
  2. TECFIDERA [Suspect]
     Indication: PRODUCT USED FOR UNKNOWN INDICATION
     Route: 048
  3. BACLOFEN [Concomitant]
  4. NEURONTIN [Concomitant]
  5. TOVIAZ [Concomitant]
  6. CIPRO [Concomitant]
  7. LIPITOR [Concomitant]
  8. VITAMIN C [Concomitant]
  9. VITAMIN D [Concomitant]
  10. CRANBERRY [Concomitant]
  11. IBUPROFEN [Concomitant]

REACTIONS (2)
  - Flushing [Recovered/Resolved]
  - Pruritus [Recovered/Resolved]
